FAERS Safety Report 13245260 (Version 1)
Quarter: 2017Q1

REPORT INFORMATION
  Report Type: Spontaneous
  Country: US (occurrence: US)
  Receive Date: 20170217
  Receipt Date: 20170217
  Transmission Date: 20170428
  Serious: Yes (Hospitalization)
  Sender: FDA-Public Use
  Company Number: US-ACTELION-A-US2017-149965

PATIENT
  Age: 11 Year
  Sex: Female

DRUGS (10)
  1. FOLIC ACID. [Concomitant]
     Active Substance: FOLIC ACID
     Dosage: 1 TABLET, QD
     Route: 048
     Dates: start: 20131104
  2. DEXTROMETHORPHAN HYDROBROMIDE W/QUINIDINE SUL [Concomitant]
     Active Substance: DEXTROMETHORPHAN HYDROBROMIDE
     Dosage: 20 MG,/10 MG BID
     Route: 048
     Dates: start: 20150415
  3. UBIQUINOL [Concomitant]
     Active Substance: UBIQUINOL
     Dosage: 100 MG, QD
     Route: 048
     Dates: start: 20131104
  4. OMEGA 3 [Concomitant]
     Active Substance: OMEGA-3 FATTY ACIDS
     Dosage: 1 EACH, AS DIRECTED
     Route: 048
     Dates: start: 20131012
  5. ZAVESCA [Suspect]
     Active Substance: MIGLUSTAT
     Indication: GAUCHER^S DISEASE
     Dosage: 75 MG, BID
     Route: 048
     Dates: start: 20121016
  6. IBUPROFEN. [Concomitant]
     Active Substance: IBUPROFEN
     Dosage: 400 MG, UNK
     Dates: start: 20131104
  7. CEFDINIR. [Concomitant]
     Active Substance: CEFDINIR
     Dosage: 125 MG/5 ML, AS DIRECTED
     Route: 048
     Dates: start: 20131012
  8. MULTIVITAMIN [Concomitant]
     Active Substance: VITAMINS
  9. MANNITOL. [Concomitant]
     Active Substance: MANNITOL
     Dosage: 310 MG, UNK
     Route: 048
     Dates: start: 20170125
  10. VITAMIN B12 [Concomitant]
     Active Substance: CYANOCOBALAMIN
     Dosage: 2500 MCG, QD
     Route: 048
     Dates: start: 20131104

REACTIONS (2)
  - Influenza [Unknown]
  - Pneumonia [Unknown]

NARRATIVE: CASE EVENT DATE: 20170213
